FAERS Safety Report 8070287-5 (Version None)
Quarter: 2012Q1

REPORT INFORMATION
  Report Type: 
  Country: None (occurrence: None)
  Receive Date: 20120125
  Receipt Date: 20120110
  Transmission Date: 20120608
  Serious: Yes (Death, Hospitalization, Disabling)
  Sender: FDA-Public Use
  Company Number: US-ROCHE-1026459

PATIENT
  Sex: Male
  Weight: 69 kg

DRUGS (9)
  1. CALCIUM [Concomitant]
     Route: 048
  2. LACTULOSE [Concomitant]
     Indication: HEPATIC CIRRHOSIS
     Route: 048
  3. COPEGUS [Suspect]
     Indication: HEPATITIS C
     Route: 048
     Dates: start: 20111130, end: 20111216
  4. SPIRONOLACTONE [Concomitant]
     Indication: HEPATIC CIRRHOSIS
     Route: 048
  5. LASIX [Concomitant]
     Indication: HYPERTENSION
     Route: 048
  6. PROPRANOLOL [Concomitant]
     Indication: HYPERTENSION
     Route: 048
  7. ENALAPRIL MALEATE [Concomitant]
     Indication: HYPERTENSION
     Route: 048
  8. BI 201335 (HCV PROTEASE INHIBITOR) [Suspect]
     Indication: HEPATITIS C
     Route: 048
     Dates: start: 20111130, end: 20111216
  9. PEGINTERFERON ALFA-2A [Suspect]
     Indication: HEPATITIS C
     Route: 058
     Dates: start: 20111130, end: 20111216

REACTIONS (3)
  - THROMBOCYTOPENIA [None]
  - CHRONIC HEPATIC FAILURE [None]
  - BLOOD BILIRUBIN INCREASED [None]
